FAERS Safety Report 10427685 (Version 2)
Quarter: 2014Q3

REPORT INFORMATION
  Report Type: Spontaneous
  Country: JP (occurrence: JP)
  Receive Date: 20140903
  Receipt Date: 20140929
  Transmission Date: 20150326
  Serious: Yes (Hospitalization)
  Sender: FDA-Public Use
  Company Number: JP-MYLAN-2014M1002397

PATIENT
  Age: 75 Year
  Sex: Female

DRUGS (1)
  1. PREDNISOLONE. [Suspect]
     Active Substance: PREDNISOLONE
     Route: 048

REACTIONS (6)
  - Nausea [Unknown]
  - Pyrexia [Recovering/Resolving]
  - Blood pressure decreased [Unknown]
  - Adrenocortical insufficiency acute [Unknown]
  - Blood glucose abnormal [Unknown]
  - Shock [Unknown]
